FAERS Safety Report 20583804 (Version 1)
Quarter: 2022Q1

REPORT INFORMATION
  Report Type: Spontaneous
  Country: US (occurrence: None)
  Receive Date: 20220311
  Receipt Date: 20220311
  Transmission Date: 20220423
  Serious: No
  Sender: FDA-Public Use
  Company Number: None

PATIENT
  Sex: Female

DRUGS (1)
  1. RINVOQ [Suspect]
     Active Substance: UPADACITINIB
     Indication: Rheumatoid arthritis
     Dosage: FREQUENCY : DAILY;?
     Route: 048

REACTIONS (6)
  - Back pain [None]
  - Condition aggravated [None]
  - Pain in extremity [None]
  - Drug ineffective [None]
  - COVID-19 [None]
  - Therapy interrupted [None]
